FAERS Safety Report 10049070 (Version 1)
Quarter: 2014Q1

REPORT INFORMATION
  Report Type: Spontaneous
  Country: FR (occurrence: FR)
  Receive Date: 20140331
  Receipt Date: 20140331
  Transmission Date: 20141002
  Serious: Yes (Other)
  Sender: FDA-Public Use
  Company Number: FR-UCBSA-115990

PATIENT
  Age: 10 Year
  Sex: Male

DRUGS (1)
  1. QUASYM LP [Suspect]
     Dosage: FOR 3 WEEKS
     Route: 048
     Dates: start: 2014, end: 2014

REACTIONS (3)
  - Cyanosis [Unknown]
  - Urticaria [Unknown]
  - Hypersensitivity [Unknown]
